FAERS Safety Report 10355223 (Version 1)
Quarter: 2014Q3

REPORT INFORMATION
  Report Type: Spontaneous
  Country: JP (occurrence: JP)
  Receive Date: 20140731
  Receipt Date: 20140731
  Transmission Date: 20150326
  Serious: Yes (Hospitalization)
  Sender: FDA-Public Use
  Company Number: JP-GE HEALTHCARE MEDICAL DIAGNOSTICS-OMPQ-PR-1407S-0845

PATIENT
  Age: 71 Year
  Sex: Female
  Weight: 63 kg

DRUGS (5)
  1. OMNIPAQUE [Suspect]
     Active Substance: IOHEXOL
     Indication: DIAGNOSTIC PROCEDURE
  2. DALACIN-S [Concomitant]
     Active Substance: CLINDAMYCIN\CLINDAMYCIN PHOSPHATE
     Dates: start: 20140607, end: 20140613
  3. CRAVIT [Suspect]
     Active Substance: LEVOFLOXACIN
     Indication: SIALOADENITIS
     Route: 048
     Dates: start: 20140614, end: 20140617
  4. ROCEPHIN [Concomitant]
     Active Substance: CEFTRIAXONE SODIUM
     Dates: start: 20140609, end: 20140613
  5. OMNIPAQUE [Suspect]
     Active Substance: IOHEXOL
     Indication: PRODUCT USED FOR UNKNOWN INDICATION
     Route: 042
     Dates: start: 20140609, end: 20140609

REACTIONS (1)
  - Erythema multiforme [Recovered/Resolved]

NARRATIVE: CASE EVENT DATE: 20140615
